FAERS Safety Report 8985319 (Version 1)
Quarter: 2012Q4

REPORT INFORMATION
  Report Type: 
  Country: US (occurrence: US)
  Receive Date: 20121226
  Receipt Date: 20121226
  Transmission Date: 20130627
  Serious: No
  Sender: FDA-Public Use
  Company Number: US-ABBOTT-12P-163-0898856-00

PATIENT
  Sex: Male

DRUGS (3)
  1. LUPRON DEPOT 45 MG [Suspect]
     Indication: PROSTATE CANCER
  2. LUPRON DEPOT 30 MG [Suspect]
     Indication: PROSTATE CANCER
  3. LUPRON DEPOT 30 MG [Suspect]

REACTIONS (3)
  - Abnormal behaviour [Unknown]
  - Feeling abnormal [Unknown]
  - Emotional disorder [Unknown]
